FAERS Safety Report 9653327 (Version 2)
Quarter: 2014Q1

REPORT INFORMATION
  Report Type: Spontaneous
  Country: US (occurrence: None)
  Receive Date: 20131028
  Receipt Date: 20140124
  Transmission Date: 20141002
  Serious: Yes (Hospitalization, Other)
  Sender: FDA-Public Use
  Company Number: AUR-APL-2013-08905

PATIENT
  Age: 44 Year
  Sex: Male

DRUGS (19)
  1. QUETIAPINE [Suspect]
     Indication: AFFECTIVE DISORDER
     Dosage: 1-3 TABLETS EVERY EVENING
  2. TAMSULOSIN [Suspect]
     Indication: PRODUCT USED FOR UNKNOWN INDICATION
  3. BOCEPREVIR [Suspect]
     Indication: PRODUCT USED FOR UNKNOWN INDICATION
     Dosage: 2400 MG (800 MG, 3 IN 1 D)
  4. DOXAZOSIN (DOXAZOSIN) [Suspect]
     Indication: HEPATITIS C
     Dosage: AT BEDTIME
  5. TESTOSTERONE CYPIONATE [Suspect]
     Indication: HYPOGONADISM
     Dosage: 14.2857 MG (200 MG, 1 IN 14 D)
     Route: 030
  6. PEGINTERFERON ALFA-2B (PEGINTERFERON ALFA-2B) [Concomitant]
  7. RIBAVIRIN (RIBAVIRIN) [Concomitant]
  8. NAPROXEN (NAPROXEN) [Concomitant]
  9. CYCLOBENZAPRINE (CYCLOBENZAPRINE) [Concomitant]
  10. ONDANSETRON (ONDANSETRON) [Concomitant]
  11. LOSARTAN (LOSARTAN) [Concomitant]
  12. ACETAMINOPHEN W/OXYCODONE (OXYCOCET) [Concomitant]
  13. LITHIUM (LITHIUM) [Concomitant]
  14. LOPERAMIDE (LOPERAMIDE) [Concomitant]
  15. ESOMEPRAZOLE (ESOMEPRAZOLE) [Concomitant]
  16. CODEINE W/GUAIFENESIN (CHERACOL /00693301/) [Concomitant]
  17. EFAVIRENZ (EFAVIRENZ) [Concomitant]
  18. EMTRICITABINE (EMTRICITABINE) [Concomitant]
  19. TENOFOVIR DISOPROXIL (TENOFOVIR DISOPROXIL) [Concomitant]

REACTIONS (6)
  - Priapism [None]
  - Drug interaction [None]
  - Nausea [None]
  - Vomiting [None]
  - Sexual dysfunction [None]
  - Bronchitis [None]
